FAERS Safety Report 5006004-2 (Version None)
Quarter: 2006Q2

REPORT INFORMATION
  Report Type: 
  Country: None (occurrence: None)
  Receive Date: 20060516
  Receipt Date: 20060502
  Transmission Date: 20061013
  Serious: Yes (Hospitalization, Other)
  Sender: FDA-Public Use
  Company Number: USA-2005-0021467

PATIENT
  Sex: Male

DRUGS (15)
  1. OXYCONTIN [Suspect]
     Indication: DRUG USE FOR UNKNOWN INDICATION
  2. ZOCOR (SERTRALINE HYDROCHLORIDE) [Concomitant]
  3. TOPROL-XL [Concomitant]
  4. LIPITOR [Concomitant]
  5. XANAX [Concomitant]
  6. PREVACID [Concomitant]
  7. VICODIN [Concomitant]
  8. ASPIRIN [Concomitant]
  9. CLONIDINE [Concomitant]
  10. WELLBUTRIN [Concomitant]
  11. PLAVIX [Concomitant]
  12. REMERON [Concomitant]
  13. AMBIEN [Concomitant]
  14. CYCLOBENAZPRINE (CYCLOBENZAPINE) [Concomitant]
  15. ISOSORBIDE (ISOSORBIDE) [Concomitant]

REACTIONS (24)
  - ANGER [None]
  - ANGINA PECTORIS [None]
  - ANXIETY [None]
  - ARTHRALGIA [None]
  - DECREASED APPETITE [None]
  - DELUSIONAL DISORDER, UNSPECIFIED TYPE [None]
  - DEPRESSION [None]
  - DISTURBANCE IN ATTENTION [None]
  - DRUG ABUSER [None]
  - DRUG DEPENDENCE [None]
  - DRUG WITHDRAWAL SYNDROME [None]
  - DYSPNOEA [None]
  - EJECTION FRACTION DECREASED [None]
  - HALLUCINATION, TACTILE [None]
  - HYPERLIPIDAEMIA [None]
  - MUSCLE SPASMS [None]
  - NECK PAIN [None]
  - OBSESSIVE-COMPULSIVE DISORDER [None]
  - PAIN [None]
  - PAIN IN EXTREMITY [None]
  - PHOTOPHOBIA [None]
  - POLYSUBSTANCE ABUSE [None]
  - ROAD TRAFFIC ACCIDENT [None]
  - SLEEP DISORDER DUE TO A GENERAL MEDICAL CONDITION [None]
